FAERS Safety Report 9701334 (Version 2)
Quarter: 2015Q3

REPORT INFORMATION
  Report Type: Spontaneous
  Country: US (occurrence: US)
  Receive Date: 20131121
  Receipt Date: 20150803
  Transmission Date: 20151125
  Serious: No
  Sender: FDA-Public Use
  Company Number: US-GILEAD-2008-0016623

PATIENT
  Age: 76 Year
  Sex: Female

DRUGS (10)
  1. HYDRALAZINE [Concomitant]
     Active Substance: HYDRALAZINE HYDROCHLORIDE
     Route: 048
  2. SPIRONOLACTONE. [Concomitant]
     Active Substance: SPIRONOLACTONE
     Route: 048
  3. GUANFACINE. [Concomitant]
     Active Substance: GUANFACINE
     Route: 048
  4. LASIX [Concomitant]
     Active Substance: FUROSEMIDE
     Route: 048
  5. FERROUS SULFATE [Concomitant]
     Active Substance: FERROUS SULFATE\FERROUS SULFATE, DRIED
     Route: 048
  6. LOTREL 10/20 [Concomitant]
     Route: 048
  7. LETAIRIS [Suspect]
     Active Substance: AMBRISENTAN
     Route: 048
     Dates: start: 20080205
  8. METOLAZONE. [Concomitant]
     Active Substance: METOLAZONE
     Route: 048
  9. ATENOLOL. [Concomitant]
     Active Substance: ATENOLOL
     Route: 048
  10. KLOR-CON [Concomitant]
     Active Substance: POTASSIUM CHLORIDE
     Route: 048

REACTIONS (2)
  - Nasal congestion [Not Recovered/Not Resolved]
  - Peripheral swelling [Unknown]
